FAERS Safety Report 9507252 (Version 1)
Quarter: 2013Q1

REPORT INFORMATION
  Report Type: Spontaneous
  Country: US (occurrence: None)
  Receive Date: 20130301
  Receipt Date: 20130301
  Transmission Date: 20140127
  Serious: Yes (Other)
  Sender: FDA-Public Use
  Company Number: RB-40452-2012

PATIENT
  Sex: Male

DRUGS (3)
  1. SUBUTEX [Suspect]
     Dosage: (2 MG TRANSPLACENTAL) (THERAPY TO UNKNOWN)
  2. PRENATAL VITAMINS [Suspect]
     Dosage: (DOSING DETAILS UNKNOWN TRANSPLACENTAL)?
  3. PRILOSEC [Suspect]
     Indication: GASTROOESOPHAGEAL REFLUX DISEASE
     Dosage: (20 MG TRANSPLACENTAL)
     Route: 064

REACTIONS (3)
  - Tremor [None]
  - Sneezing [None]
  - Foetal exposure during pregnancy [None]
